FAERS Safety Report 18276805 (Version 3)
Quarter: 2022Q1

REPORT INFORMATION
  Report Type: Spontaneous
  Country: US (occurrence: None)
  Receive Date: 20200917
  Receipt Date: 20220127
  Transmission Date: 20220423
  Serious: Yes (Death, Other)
  Sender: FDA-Public Use
  Company Number: 2020SF17818

PATIENT
  Age: 66 Year
  Sex: Female
  Weight: 82.5 kg

DRUGS (45)
  1. PRILOSEC [Suspect]
     Active Substance: OMEPRAZOLE MAGNESIUM
     Indication: Gastrooesophageal reflux disease
     Route: 048
     Dates: start: 200001, end: 201412
  2. PRILOSEC [Suspect]
     Active Substance: OMEPRAZOLE MAGNESIUM
     Indication: Gastrooesophageal reflux disease
     Route: 048
  3. PREVACID [Suspect]
     Active Substance: LANSOPRAZOLE
     Indication: Gastrooesophageal reflux disease
     Route: 065
     Dates: start: 200001, end: 201412
  4. PREVACID [Suspect]
     Active Substance: LANSOPRAZOLE
     Indication: Gastrooesophageal reflux disease
     Route: 065
  5. METOPROLOL [Concomitant]
     Active Substance: METOPROLOL
  6. LOSARTAN [Concomitant]
     Active Substance: LOSARTAN
  7. NITROGLYCERIN [Concomitant]
     Active Substance: NITROGLYCERIN
  8. POTASSIUM CHLORIDE [Concomitant]
     Active Substance: POTASSIUM CHLORIDE
  9. ROPINIROLE [Concomitant]
     Active Substance: ROPINIROLE
  10. ZOLPIDEM [Concomitant]
     Active Substance: ZOLPIDEM TARTRATE
  11. ACYCLOVIR [Concomitant]
     Active Substance: ACYCLOVIR
  12. FLUTICASONE [Concomitant]
     Active Substance: FLUTICASONE
  13. FUROSEMIDE [Concomitant]
     Active Substance: FUROSEMIDE
  14. IPRATROPIUM [Concomitant]
     Active Substance: IPRATROPIUM
  15. PROMETHAZINE [Concomitant]
     Active Substance: PROMETHAZINE HYDROCHLORIDE
  16. VENLAFAXINE [Concomitant]
     Active Substance: VENLAFAXINE HYDROCHLORIDE
  17. GABAPENTIN [Concomitant]
     Active Substance: GABAPENTIN
  18. TIZANIDINE [Concomitant]
     Active Substance: TIZANIDINE
  19. ONDANSETRON [Concomitant]
     Active Substance: ONDANSETRON
  20. ALBUTEROL [Concomitant]
     Active Substance: ALBUTEROL
  21. BUDESONIDE [Concomitant]
     Active Substance: BUDESONIDE
  22. GLIMEPIRIDE [Concomitant]
     Active Substance: GLIMEPIRIDE
  23. HYDROCODONE [Concomitant]
     Active Substance: HYDROCODONE
  24. CHOLECALCIFEROL [Concomitant]
     Active Substance: CHOLECALCIFEROL
  25. VITAMINS [Concomitant]
     Active Substance: VITAMINS
  26. SUMATRIPTAN [Concomitant]
     Active Substance: SUMATRIPTAN
  27. AZITHROMYCIN [Concomitant]
     Active Substance: AZITHROMYCIN
  28. METHYLPREDNISOLONE [Concomitant]
     Active Substance: METHYLPREDNISOLONE
  29. ASPIRIN [Concomitant]
     Active Substance: ASPIRIN
  30. FOLIC ACID [Concomitant]
     Active Substance: FOLIC ACID
  31. HYOSCYAMINE SULFATE [Concomitant]
     Active Substance: HYOSCYAMINE SULFATE
  32. COZAAR [Concomitant]
     Active Substance: LOSARTAN POTASSIUM
  33. CLARITIN [Concomitant]
     Active Substance: LORATADINE
  34. K-DUR [Concomitant]
     Active Substance: POTASSIUM CHLORIDE
  35. PHENERGAN [Concomitant]
     Active Substance: PROMETHAZINE HYDROCHLORIDE
  36. SYMBICORT [Concomitant]
     Active Substance: BUDESONIDE\FORMOTEROL FUMARATE DIHYDRATE
  37. SODIUM CHLORIDE [Concomitant]
     Active Substance: SODIUM CHLORIDE
  38. IMITREX [Concomitant]
     Active Substance: SUMATRIPTAN SUCCINATE
  39. BENZONATATE [Concomitant]
     Active Substance: BENZONATATE
  40. AMARYL [Concomitant]
     Active Substance: GLIMEPIRIDE
  41. NITROSTAT [Concomitant]
     Active Substance: NITROGLYCERIN
  42. BENTYL [Concomitant]
     Active Substance: DICYCLOMINE HYDROCHLORIDE
  43. LORATADINE [Concomitant]
     Active Substance: LORATADINE
  44. LINACLOTIDE [Concomitant]
     Active Substance: LINACLOTIDE
  45. ALPRAZOLAM [Concomitant]
     Active Substance: ALPRAZOLAM

REACTIONS (4)
  - Toxicity to various agents [Fatal]
  - Chronic kidney disease [Unknown]
  - End stage renal disease [Unknown]
  - Acute kidney injury [Unknown]

NARRATIVE: CASE EVENT DATE: 20180101
